FAERS Safety Report 16675424 (Version 1)
Quarter: 2019Q3

REPORT INFORMATION
  Report Type: Spontaneous
  Country: IT (occurrence: IT)
  Receive Date: 20190806
  Receipt Date: 20190806
  Transmission Date: 20191004
  Serious: Yes (Hospitalization)
  Sender: FDA-Public Use
  Company Number: PHHY2019IT179343

PATIENT
  Age: 81 Year
  Sex: Male

DRUGS (2)
  1. OMEPRAZOLE. [Suspect]
     Active Substance: OMEPRAZOLE
     Indication: ATRIAL FIBRILLATION
     Route: 065
  2. ACENOCOUMAROL [Suspect]
     Active Substance: ACENOCOUMAROL
     Indication: ATRIAL FIBRILLATION
     Route: 065

REACTIONS (3)
  - Subdural haematoma [Recovered/Resolved]
  - Duodenal ulcer [Recovered/Resolved]
  - Labelled drug-drug interaction medication error [Recovered/Resolved]
